FAERS Safety Report 4323530-X (Version None)
Quarter: 2004Q1

REPORT INFORMATION
  Report Type: 
  Country: None (occurrence: None)
  Receive Date: 20040322
  Receipt Date: 20040305
  Transmission Date: 20041129
  Serious: No
  Sender: FDA-Public Use
  Company Number: 2004AC00025

PATIENT
  Age: 5 Year
  Sex: Female

DRUGS (4)
  1. PROPOFOL [Suspect]
     Indication: SEDATION
     Dosage: 15 MG/KG HR
  2. PROPOFOL [Suspect]
     Indication: SEDATION
     Dosage: 6 ML/KG HR
  3. INSULIN [Concomitant]
  4. LABETALOL HCL [Concomitant]

REACTIONS (3)
  - BRADYCARDIA [None]
  - HYPOTHERMIA [None]
  - LACTIC ACIDOSIS [None]
